FAERS Safety Report 20534953 (Version 3)
Quarter: 2022Q3

REPORT INFORMATION
  Report Type: Report from Study
  Country: JP (occurrence: JP)
  Receive Date: 20220302
  Receipt Date: 20220728
  Transmission Date: 20221026
  Serious: Yes (Other)
  Sender: FDA-Public Use
  Company Number: JP-CELLTRION INC.-2020JP023939

PATIENT

DRUGS (8)
  1. INFLIXIMAB-DYYB [Suspect]
     Active Substance: INFLIXIMAB-DYYB
     Indication: Crohn^s disease
     Dosage: 355 MG (WEIGHT OF 71KG)
     Route: 041
     Dates: start: 20181107, end: 20181107
  2. INFLIXIMAB-DYYB [Suspect]
     Active Substance: INFLIXIMAB-DYYB
     Dosage: 355 MG (WEIGHT OF 71 KG)
     Route: 041
     Dates: start: 20190109, end: 20190109
  3. INFLIXIMAB-DYYB [Suspect]
     Active Substance: INFLIXIMAB-DYYB
     Dosage: 345 MG (WEIGHT OF 69 KG)
     Route: 041
     Dates: start: 20190313, end: 20190313
  4. INFLIXIMAB-DYYB [Suspect]
     Active Substance: INFLIXIMAB-DYYB
     Dosage: 345 MG (WEIGHT OF 69 KG)
     Route: 041
     Dates: start: 20190508, end: 20190508
  5. INFLIXIMAB-DYYB [Suspect]
     Active Substance: INFLIXIMAB-DYYB
     Dosage: 690 MG (WEIGHT OF 69KG)
     Route: 041
     Dates: start: 20191016, end: 20191016
  6. INFLIXIMAB-DYYB [Suspect]
     Active Substance: INFLIXIMAB-DYYB
     Dosage: 690 MG (WEIGHT OF 69 KG)
     Route: 041
     Dates: start: 20201110, end: 20201110
  7. INFLIXIMAB-DYYB [Suspect]
     Active Substance: INFLIXIMAB-DYYB
     Dosage: 710 MG (WEIGHT OF 70.8 KG)
     Route: 041
     Dates: start: 20211012, end: 20211012
  8. MESALAMINE [Concomitant]
     Active Substance: MESALAMINE
     Indication: Product used for unknown indication
     Dosage: 2000 MILLIGRAM PER DAY
     Route: 048

REACTIONS (12)
  - Rectal polypectomy [Recovered/Resolved]
  - Large intestine polyp [Recovered/Resolved]
  - Abdominal discomfort [Recovered/Resolved]
  - Abdominal distension [Recovered/Resolved]
  - Abdominal pain upper [Recovered/Resolved]
  - Infusion related reaction [Not Recovered/Not Resolved]
  - Malaise [Recovered/Resolved]
  - Urticaria [Not Recovered/Not Resolved]
  - Abdominal pain [Recovered/Resolved]
  - Off label use [Unknown]
  - Therapeutic product effect decreased [Unknown]
  - Therapy change [Unknown]

NARRATIVE: CASE EVENT DATE: 20190109
